FAERS Safety Report 9688543 (Version 1)
Quarter: 2013Q4

REPORT INFORMATION
  Report Type: Spontaneous
  Country: US (occurrence: None)
  Receive Date: 20131112
  Receipt Date: 20131112
  Transmission Date: 20140711
  Serious: Yes (Other)
  Sender: FDA-Public Use
  Company Number: FK201304860

PATIENT
  Age: 31 Year
  Sex: Female

DRUGS (7)
  1. HALOPERIDOL [Suspect]
     Indication: AGITATION
     Route: 042
  2. ONDANSETRON [Suspect]
     Indication: NAUSEA
  3. METHADONE [Suspect]
     Indication: PRODUCT USED FOR UNKNOWN INDICATION
     Dosage: 10 MG , 3 DOSES OF 10 MG OVER 12 HOURS
  4. METHADONE [Suspect]
     Indication: BACK PAIN
     Dosage: 10 MG , 3 DOSES OF 10 MG OVER 12 HOURS
  5. METHADONE [Suspect]
     Indication: ABDOMINAL PAIN
     Dosage: 10 MG , 3 DOSES OF 10 MG OVER 12 HOURS
  6. OLANZAPINE [Suspect]
     Dosage: ORALLY DISINIGRATING TABLET, ORAL
     Route: 048
  7. HYDROMORPHONE (HYDROMORPHONE) [Concomitant]

REACTIONS (6)
  - Torsade de pointes [None]
  - Unresponsive to stimuli [None]
  - Device malfunction [None]
  - Nodal rhythm [None]
  - Ventricular extrasystoles [None]
  - Myocarditis [None]
